FAERS Safety Report 9254043 (Version 1)
Quarter: 2013Q2

REPORT INFORMATION
  Report Type: Spontaneous
  Country: US (occurrence: None)
  Receive Date: 20130424
  Receipt Date: 20130424
  Transmission Date: 20140414
  Serious: Yes (Disabling, Other)
  Sender: FDA-Public Use
  Company Number: None

PATIENT
  Age: 63 Year
  Sex: Female
  Weight: 83.92 kg

DRUGS (1)
  1. JANTOVEN [Suspect]
     Indication: ATRIAL FIBRILLATION
     Dosage: 1 TAKE 5-6-5  EVERY DAY- ROTATE PO?MY BROTHER 3-4-3  EVERY DAY  PO
     Route: 048
     Dates: start: 20121101, end: 20130424

REACTIONS (3)
  - Product substitution issue [None]
  - International normalised ratio increased [None]
  - Prothrombin time prolonged [None]
